FAERS Safety Report 5098666-9 (Version None)
Quarter: 2006Q3

REPORT INFORMATION
  Report Type: 
  Country: None (occurrence: None)
  Receive Date: 20060907
  Receipt Date: 20060829
  Transmission Date: 20061208
  Serious: Yes (Hospitalization)
  Sender: FDA-Public Use
  Company Number: FR-BRISTOL-MYERS SQUIBB COMPANY-13494695

PATIENT
  Age: 75 Year
  Sex: Male

DRUGS (3)
  1. MODITEN TABS 100 MG [Suspect]
     Route: 048
     Dates: start: 20060611, end: 20060611
  2. TERCIAN [Suspect]
     Dosage: 1 DOSAGE FORM = 40 MG/ML
     Route: 048
     Dates: start: 20060611, end: 20060611
  3. RIVOTRIL [Suspect]
     Dosage: 1 DOSAGE FORM = 2.5 MG/ML
     Route: 048
     Dates: start: 20060611, end: 20060611

REACTIONS (5)
  - COMA [None]
  - RESPIRATORY DEPRESSION [None]
  - SOMNOLENCE [None]
  - TACHYCARDIA [None]
  - WRONG DRUG ADMINISTERED [None]
